FAERS Safety Report 10655451 (Version 1)
Quarter: 2014Q4

REPORT INFORMATION
  Report Type: Spontaneous
  Country: US (occurrence: US)
  Receive Date: 20141216
  Receipt Date: 20141216
  Transmission Date: 20150529
  Serious: No
  Sender: FDA-Public Use
  Company Number: US-GLAXOSMITHKLINE-US2014GSK034658

PATIENT
  Age: 50 Year
  Sex: Male

DRUGS (1)
  1. LAMICTAL [Suspect]
     Active Substance: LAMOTRIGINE
     Indication: BIPOLAR DISORDER
     Dosage: UNK, U
     Route: 065
     Dates: start: 201406

REACTIONS (2)
  - Malaise [Unknown]
  - Emergency care examination [Unknown]

NARRATIVE: CASE EVENT DATE: 2014
